FAERS Safety Report 16570178 (Version 1)
Quarter: 2019Q3

REPORT INFORMATION
  Report Type: Report from Study
  Country: US (occurrence: US)
  Receive Date: 20190715
  Receipt Date: 20190715
  Transmission Date: 20191004
  Serious: Yes (Other)
  Sender: FDA-Public Use
  Company Number: US-SA-2019SA183507

PATIENT
  Age: 55 Year
  Sex: Male

DRUGS (2)
  1. INSULIN GLARGINE [Suspect]
     Active Substance: INSULIN GLARGINE
     Indication: TYPE 2 DIABETES MELLITUS
     Dosage: 53 UNITS IN THE AM, 73 UNITS IN THE PM
     Route: 058
  2. INSULIN GLARGINE [Suspect]
     Active Substance: INSULIN GLARGINE
     Indication: HYPERGLYCAEMIA

REACTIONS (6)
  - Polydipsia [Unknown]
  - Treatment noncompliance [Unknown]
  - Hyperphagia [Unknown]
  - Hemiparesis [Unknown]
  - Diabetes mellitus inadequate control [Unknown]
  - Polyuria [Unknown]
